FAERS Safety Report 6662278-3 (Version None)
Quarter: 2010Q1

REPORT INFORMATION
  Report Type: 
  Country: None (occurrence: None)
  Receive Date: 20100331
  Receipt Date: 20100318
  Transmission Date: 20100710
  Serious: Yes (Other)
  Sender: FDA-Public Use
  Company Number: NL-MYLANLABS-2010S1004945

PATIENT
  Age: 42 Year
  Sex: Female
  Weight: 59 kg

DRUGS (4)
  1. TRAMADOL HCL [Suspect]
     Indication: BACK PAIN
     Dates: start: 20090513, end: 20090513
  2. TRAMADOL HCL [Suspect]
     Indication: ARTHRALGIA
     Dates: start: 20090513, end: 20090513
  3. RIVOTRIL [Concomitant]
     Indication: DRUG USE FOR UNKNOWN INDICATION
     Dates: start: 20090501
  4. MINISTAT /00022701/ [Concomitant]
     Indication: DRUG USE FOR UNKNOWN INDICATION
     Dates: start: 20040101

REACTIONS (6)
  - BLOOD PRESSURE DECREASED [None]
  - DIZZINESS [None]
  - DYSURIA [None]
  - FATIGUE [None]
  - HEADACHE [None]
  - NAUSEA [None]
